FAERS Safety Report 8346619 (Version 2)
Quarter: 2013Q4

REPORT INFORMATION
  Report Type: Spontaneous
  Country: US (occurrence: None)
  Receive Date: 20071123
  Receipt Date: 20131015
  Transmission Date: 20140711
  Serious: Yes (Other)
  Sender: FDA-Public Use
  Company Number: 2007S1008419

PATIENT
  Age: 64 Year
  Sex: Female
  Weight: 64.5 kg

DRUGS (6)
  1. FLEET PHOSPHO-SODA [Suspect]
     Indication: COLONOSCOPY
     Dosage: PO
     Route: 048
     Dates: start: 20051025
  2. LEVOTHYROXINE (LEVOTHYROXINE) [Concomitant]
  3. LISINOPRIL (LISINOPRIL) [Concomitant]
  4. EXCEDRIN (ACETYLSALIC ACID, CAFFEINE, SALICYLAMIDE) [Concomitant]
  5. GLUCOSAMINE (GLUCOSAMINE) [Concomitant]
  6. VITAMIN C (ASCORBIC ACID) [Concomitant]

REACTIONS (1)
  - Nephropathy [None]
